FAERS Safety Report 16441735 (Version 1)
Quarter: 2019Q2

REPORT INFORMATION
  Report Type: Report from Study
  Country: US (occurrence: US)
  Receive Date: 20190617
  Receipt Date: 20190617
  Transmission Date: 20190711
  Serious: No
  Sender: FDA-Public Use
  Company Number: US-US WORLDMEDS, LLC-USW201806-000876

PATIENT
  Age: 58 Year

DRUGS (6)
  1. APOKYN [Suspect]
     Active Substance: APOMORPHINE HYDROCHLORIDE
     Indication: PARKINSON^S DISEASE
     Route: 058
     Dates: start: 20180313, end: 20180520
  2. ROBAXIN [Concomitant]
     Active Substance: METHOCARBAMOL
  3. RYTARY [Concomitant]
     Active Substance: CARBIDOPA\LEVODOPA
  4. LEXAPRO [Concomitant]
     Active Substance: ESCITALOPRAM OXALATE
  5. LIDODERM [Concomitant]
     Active Substance: LIDOCAINE
  6. NEUPRO [Concomitant]
     Active Substance: ROTIGOTINE

REACTIONS (2)
  - Hallucination, visual [Recovered/Resolved]
  - Impulsive behaviour [Recovered/Resolved]

NARRATIVE: CASE EVENT DATE: 201804
